FAERS Safety Report 7537262-8 (Version None)
Quarter: 2011Q2

REPORT INFORMATION
  Report Type: 
  Country: None (occurrence: None)
  Receive Date: 20110609
  Receipt Date: 20110606
  Transmission Date: 20111010
  Serious: No
  Sender: FDA-Public Use
  Company Number: US-PFIZER INC-2011123170

PATIENT
  Sex: Male

DRUGS (2)
  1. AMBIEN [Concomitant]
     Indication: POOR QUALITY SLEEP
     Dosage: UNK
  2. ADVIL LIQUI-GELS [Suspect]
     Indication: PAIN
     Dosage: 200 MG, AS NEEDED
     Route: 048
     Dates: start: 20110518

REACTIONS (2)
  - SWELLING FACE [None]
  - LIP SWELLING [None]
